FAERS Safety Report 12592825 (Version 2)
Quarter: 2019Q1

REPORT INFORMATION
  Report Type: Report from Study
  Country: US (occurrence: US)
  Receive Date: 20160726
  Receipt Date: 20190304
  Transmission Date: 20190417
  Serious: Yes (Other)
  Sender: FDA-Public Use
  Company Number: US-AMGEN-USASP2016093859

PATIENT
  Age: 70 Year
  Sex: Female
  Weight: 48.53 kg

DRUGS (1)
  1. PROLIA [Suspect]
     Active Substance: DENOSUMAB
     Indication: OSTEOPOROSIS POSTMENOPAUSAL
     Dosage: UNK UNK, Q6MO
     Route: 065
     Dates: start: 2015

REACTIONS (6)
  - Weight increased [Unknown]
  - Oedema peripheral [Unknown]
  - Bladder discomfort [Recovered/Resolved]
  - Ascites [Unknown]
  - Herpes zoster [Unknown]
  - Adverse event [Unknown]
